FAERS Safety Report 8229804-4 (Version None)
Quarter: 2012Q1

REPORT INFORMATION
  Report Type: 
  Country: None (occurrence: None)
  Receive Date: 20120322
  Receipt Date: 20120309
  Transmission Date: 20120608
  Serious: Yes (Hospitalization)
  Sender: FDA-Public Use
  Company Number: US-MYLANLABS-2012S1005468

PATIENT
  Age: 4 Year
  Sex: Male

DRUGS (1)
  1. CLONAZEPAM [Suspect]
     Indication: ACCIDENTAL OVERDOSE
     Route: 048

REACTIONS (4)
  - ATRIOVENTRICULAR BLOCK [None]
  - RESPIRATORY DEPRESSION [None]
  - ATAXIA [None]
  - ACCIDENTAL OVERDOSE [None]
